FAERS Safety Report 21580640 (Version 1)
Quarter: 2022Q4

REPORT INFORMATION
  Report Type: Spontaneous
  Country: AU (occurrence: None)
  Receive Date: 20221111
  Receipt Date: 20221111
  Transmission Date: 20230112
  Serious: Yes (Other)
  Sender: FDA-Public Use
  Company Number: 2022A367133

PATIENT
  Age: 86 Year
  Sex: Male

DRUGS (3)
  1. OSIMERTINIB [Suspect]
     Active Substance: OSIMERTINIB
     Indication: Non-small cell lung cancer
     Route: 048
     Dates: start: 201810
  2. GEFITINIB [Suspect]
     Active Substance: GEFITINIB
     Indication: Non-small cell lung cancer
     Route: 048
     Dates: start: 201802
  3. TEPOTINIB [Suspect]
     Active Substance: TEPOTINIB
     Route: 065
     Dates: start: 202105

REACTIONS (5)
  - Malignant neoplasm progression [Unknown]
  - Oedema peripheral [Unknown]
  - Decreased appetite [Unknown]
  - Fatigue [Unknown]
  - Therapy partial responder [Unknown]
